FAERS Safety Report 12892388 (Version 3)
Quarter: 2016Q4

REPORT INFORMATION
  Report Type: Spontaneous
  Country: BE (occurrence: BE)
  Receive Date: 20161028
  Receipt Date: 20161122
  Transmission Date: 20170207
  Serious: Yes (Hospitalization)
  Sender: FDA-Public Use
  Company Number: BE-MALLINCKRODT-T201605398

PATIENT
  Age: 18 Year
  Sex: Male
  Weight: 73 kg

DRUGS (20)
  1. NACL [Concomitant]
     Active Substance: SODIUM CHLORIDE
     Dosage: 1000 ML, UNK
     Route: 042
  2. PANTOMED [Concomitant]
     Active Substance: DEXPANTHENOL
     Dosage: 40 MG, QD
     Route: 048
  3. DUOVENT [Concomitant]
     Active Substance: FENOTEROL HYDROBROMIDE
     Dosage: AT 08:00, 12:00, 16:00, 22:00
  4. PENTACARINAT [Concomitant]
     Active Substance: PENTAMIDINE ISETHIONATE
     Dosage: 300 MG, Q4 WEEKS
     Route: 030
  5. D-VITAL-WLL [Concomitant]
     Dosage: 1000MG/800 IE DAILY
     Route: 048
  6. UVADEX [Suspect]
     Active Substance: METHOXSALEN
     Indication: CHRONIC GRAFT VERSUS HOST DISEASE
     Dosage: 3.9 ML, SINGLE
     Route: 057
     Dates: start: 20161019, end: 20161019
  7. ACTRAPID [Concomitant]
     Active Substance: INSULIN HUMAN
     Dosage: 1/2 AT 4X/DAY
     Route: 058
  8. D-CURE [Concomitant]
     Dosage: 25,000 IE DAILY
     Route: 048
  9. DIFLUCAN [Concomitant]
     Active Substance: FLUCONAZOLE
     Dosage: 200 MG, QD
     Route: 048
  10. PARACETAMOL [Concomitant]
     Active Substance: ACETAMINOPHEN
     Dosage: 10MG/1ML
     Route: 042
     Dates: start: 20161020
  11. ACD-A [Suspect]
     Active Substance: ANHYDROUS CITRIC ACID\DEXTROSE MONOHYDRATE\SODIUM CITRATE
     Indication: ANTICOAGULANT THERAPY
     Dosage: 12:1
     Dates: start: 20161019, end: 20161019
  12. VFEND [Suspect]
     Active Substance: VORICONAZOLE
     Indication: PRODUCT USED FOR UNKNOWN INDICATION
     Dosage: 200 MG, UNK
     Route: 048
     Dates: end: 20161019
  13. MORPHINE [Concomitant]
     Active Substance: MORPHINE
     Dosage: 5 MG PRN- MAXIMUM 6/DAY
     Route: 042
  14. MEDROL COMP [Concomitant]
     Dosage: 24 MG, QD
     Route: 048
  15. METRONIDAZOLE. [Concomitant]
     Active Substance: METRONIDAZOLE
     Dosage: 2 %, BID
     Route: 003
  16. ZOVIRAX [Concomitant]
     Active Substance: ACYCLOVIR
     Dosage: 800 MG, QD
     Route: 048
  17. CYCLOSPORINE. [Suspect]
     Active Substance: CYCLOSPORINE
     Indication: PRODUCT USED FOR UNKNOWN INDICATION
     Route: 065
  18. AMOXICLAV [Concomitant]
     Active Substance: AMOXICILLIN\CLAVULANIC ACID
     Dosage: 1G/100ML, 4 TIMES DAILY
     Route: 042
  19. MEDROL COMP [Concomitant]
     Dosage: 32 MG, QD
     Route: 048
  20. NEORAL [Concomitant]
     Active Substance: CYCLOSPORINE
     Dosage: UNK
     Route: 048
     Dates: end: 201610

REACTIONS (9)
  - Blood magnesium decreased [Unknown]
  - Fall [Recovered/Resolved]
  - Hyperglycaemia [Unknown]
  - Off label use [Unknown]
  - Encephalopathy [Recovered/Resolved]
  - Blood calcium decreased [Unknown]
  - Blood phosphorus decreased [Unknown]
  - Hypoproteinaemia [Unknown]
  - Epilepsy [Recovered/Resolved]

NARRATIVE: CASE EVENT DATE: 20161020
